FAERS Safety Report 8295632-7 (Version None)
Quarter: 2012Q2

REPORT INFORMATION
  Report Type: 
  Country: None (occurrence: None)
  Receive Date: 20120418
  Receipt Date: 20120412
  Transmission Date: 20120825
  Serious: No
  Sender: FDA-Public Use
  Company Number: US-B.I. PHARMACEUTICALS,INC./RIDGEFIELD-2012-BP-06948BP

PATIENT
  Sex: Female

DRUGS (11)
  1. VITAMIN B-12 [Concomitant]
     Indication: PROPHYLAXIS
     Route: 048
  2. LASIX [Concomitant]
     Dosage: 20 MG
     Route: 048
  3. XALATAN [Concomitant]
     Indication: DRY EYE
     Route: 031
  4. ALLOPURINOL [Concomitant]
     Indication: GOUTY ARTHRITIS
     Dosage: 200 MG
     Route: 048
  5. PERSANTINE [Suspect]
     Indication: PROPHYLAXIS
     Route: 048
     Dates: start: 20120308
  6. ASPIRIN [Suspect]
     Indication: PROPHYLAXIS
     Dosage: 81 MG
     Route: 048
     Dates: start: 20120308
  7. NORVASC [Concomitant]
     Indication: HYPERTENSION
     Dosage: 2.5 MG
     Route: 048
     Dates: start: 20060101, end: 20120411
  8. MAXZIDE [Concomitant]
  9. POTASSIUM [Concomitant]
     Dosage: 20 MEQ
     Route: 048
  10. CALCITRIOL [Concomitant]
     Route: 048
  11. IRON SUPPLEMENT [Concomitant]
     Indication: ANAEMIA
     Route: 048

REACTIONS (2)
  - CREATININE RENAL CLEARANCE INCREASED [None]
  - HYPOTENSION [None]
